FAERS Safety Report 4324142-4 (Version None)
Quarter: 2004Q1

REPORT INFORMATION
  Report Type: 
  Country: None (occurrence: None)
  Receive Date: 20040326
  Receipt Date: 20031230
  Transmission Date: 20041129
  Serious: No
  Sender: FDA-Public Use
  Company Number: US-GLAXOSMITHKLINE-A0490846A

PATIENT
  Age: 34 Year
  Sex: Female

DRUGS (8)
  1. ADVAIR DISKUS 100/50 [Suspect]
     Dosage: 1PUFF TWICE PER DAY
     Route: 055
     Dates: start: 20031205
  2. ALBUTEROL [Concomitant]
  3. AZMACORT [Concomitant]
  4. ASTELIN [Concomitant]
  5. SINGULAIR [Concomitant]
  6. ZYRTEC [Concomitant]
  7. LEVAQUIN [Concomitant]
  8. SPRINTEC [Concomitant]

REACTIONS (1)
  - MOUTH PLAQUE [None]
